FAERS Safety Report 7070236-2 (Version None)
Quarter: 2010Q4

REPORT INFORMATION
  Report Type: 
  Country: None (occurrence: None)
  Receive Date: 20101028
  Receipt Date: 20100923
  Transmission Date: 20110411
  Serious: No
  Sender: FDA-Public Use
  Company Number: US-WYE-H17753310

PATIENT
  Sex: Female
  Weight: 62.65 kg

DRUGS (1)
  1. PROTONIX [Suspect]
     Indication: GASTROOESOPHAGEAL REFLUX DISEASE
     Route: 048
     Dates: start: 20100922, end: 20100923

REACTIONS (3)
  - EATING DISORDER [None]
  - FEELING ABNORMAL [None]
  - UNEVALUABLE EVENT [None]
